FAERS Safety Report 8917272 (Version 1)
Quarter: 2012Q4

REPORT INFORMATION
  Report Type: 
  Country: FR (occurrence: FR)
  Receive Date: 20121119
  Receipt Date: 20121119
  Transmission Date: 20130627
  Serious: Yes (Hospitalization)
  Sender: FDA-Public Use
  Company Number: FR-MYLANLABS-2012S1023068

PATIENT
  Age: 71 Year
  Sex: Female

DRUGS (11)
  1. EPIRUBICIN [Suspect]
     Indication: BREAST CANCER METASTATIC
     Route: 042
     Dates: start: 20120803
  2. EPIRUBICIN [Suspect]
     Indication: BREAST CANCER METASTATIC
     Route: 042
     Dates: start: 20120824
  3. EPIRUBICIN [Suspect]
     Indication: BREAST CANCER METASTATIC
     Route: 042
     Dates: start: 20120914
  4. EPIRUBICIN [Suspect]
     Indication: BREAST CANCER METASTATIC
     Route: 042
     Dates: start: 20121005
  5. TAXOTERE [Suspect]
     Indication: BREAST CANCER METASTATIC
     Route: 042
     Dates: start: 20120803
  6. TAXOTERE [Suspect]
     Indication: BREAST CANCER METASTATIC
     Route: 042
     Dates: start: 20120824
  7. TAXOTERE [Suspect]
     Indication: BREAST CANCER METASTATIC
     Route: 042
     Dates: start: 20120914
  8. TAXOTERE [Suspect]
     Indication: BREAST CANCER METASTATIC
     Route: 042
     Dates: start: 20121005
  9. SOLUMEDROL [Concomitant]
     Indication: PREMEDICATION
     Route: 042
     Dates: start: 20121005
  10. TRANXENE [Concomitant]
     Indication: PREMEDICATION
     Route: 042
     Dates: start: 20121005
  11. ZOPHREN [Concomitant]
     Indication: PREMEDICATION
     Route: 042
     Dates: start: 20121005

REACTIONS (2)
  - Hypertension [Recovered/Resolved]
  - Erythema [Recovered/Resolved]
